FAERS Safety Report 22322986 (Version 1)
Quarter: 2023Q2

REPORT INFORMATION
  Report Type: Spontaneous
  Country: US (occurrence: None)
  Receive Date: 20230516
  Receipt Date: 20230516
  Transmission Date: 20230721
  Serious: No
  Sender: FDA-Public Use
  Company Number: US-Axsome Therapeutics, Inc.-AXS202302-000254

PATIENT
  Sex: Female

DRUGS (2)
  1. SUNOSI [Suspect]
     Active Substance: SOLRIAMFETOL
     Indication: Product used for unknown indication
     Route: 048
     Dates: start: 202109
  2. SUNOSI [Suspect]
     Active Substance: SOLRIAMFETOL
     Route: 048

REACTIONS (2)
  - Abdominal pain [Unknown]
  - Adverse drug reaction [Unknown]
